FAERS Safety Report 7510231-X (Version None)
Quarter: 2011Q2

REPORT INFORMATION
  Report Type: 
  Country: None (occurrence: None)
  Receive Date: 20110527
  Receipt Date: 20110525
  Transmission Date: 20111010
  Serious: Yes (Death)
  Sender: FDA-Public Use
  Company Number: PHHY2011GB45281

PATIENT
  Sex: Female

DRUGS (4)
  1. VALPROATE SODIUM [Suspect]
     Indication: EPILEPSY
  2. TOPIRAMATE [Suspect]
     Indication: EPILEPSY
  3. PHENOBARBITAL TAB [Suspect]
     Indication: EPILEPSY
  4. CARBAMAZEPINE [Suspect]
     Indication: EPILEPSY

REACTIONS (2)
  - METABOLIC DISORDER [None]
  - STATUS EPILEPTICUS [None]
